FAERS Safety Report 16536547 (Version 1)
Quarter: 2019Q3

REPORT INFORMATION
  Report Type: Spontaneous
  Country: US (occurrence: US)
  Receive Date: 20190706
  Receipt Date: 20190706
  Transmission Date: 20191004
  Serious: No
  Sender: FDA-Public Use
  Company Number: US-TEVA-2019-US-1069078

PATIENT
  Sex: Female

DRUGS (1)
  1. BUPRENORPHINE. [Suspect]
     Active Substance: BUPRENORPHINE
     Indication: PAIN
     Dosage: 15 MCG / HR
     Route: 062

REACTIONS (6)
  - Fatigue [Unknown]
  - Sedation [Unknown]
  - Product adhesion issue [Unknown]
  - Product use issue [Unknown]
  - Somnolence [Unknown]
  - Drug ineffective [Unknown]
